FAERS Safety Report 6933032-X (Version None)
Quarter: 2010Q3

REPORT INFORMATION
  Report Type: 
  Country: None (occurrence: None)
  Receive Date: 20100818
  Receipt Date: 20100818
  Transmission Date: 20110219
  Serious: Yes (Life-Threatening, Disabling, Other)
  Sender: FDA-Public Use
  Company Number: None

PATIENT
  Age: 52 Year
  Sex: Female
  Weight: 71.4 kg

DRUGS (4)
  1. SYMBICORT [Suspect]
     Indication: ASTHMA
     Dosage: SYMBICORT 2 PUFFS ASTRA-ZENECA 160-4. BID RESPIRATORY (054) P ALBUTEROL/ATROVENT
     Route: 055
     Dates: start: 20100501
  2. SYMBICORT [Suspect]
     Indication: CYSTIC FIBROSIS
     Dosage: SYMBICORT 2 PUFFS ASTRA-ZENECA 160-4. BID RESPIRATORY (054) P ALBUTEROL/ATROVENT
     Route: 055
     Dates: start: 20100501
  3. ALBUTEROL [Concomitant]
  4. ATROVENT [Concomitant]

REACTIONS (28)
  - ABASIA [None]
  - ASTHENIA [None]
  - BACK PAIN [None]
  - DERMATOMYOSITIS [None]
  - DRUG INEFFECTIVE [None]
  - DYSGRAPHIA [None]
  - DYSPEPSIA [None]
  - DYSPHEMIA [None]
  - DYSPNOEA [None]
  - FATIGUE [None]
  - FEAR [None]
  - FEELING ABNORMAL [None]
  - FLANK PAIN [None]
  - IMPAIRED DRIVING ABILITY [None]
  - INSOMNIA [None]
  - MALAISE [None]
  - MEMORY IMPAIRMENT [None]
  - MOTION SICKNESS [None]
  - MUSCLE TIGHTNESS [None]
  - MUSCULOSKELETAL CHEST PAIN [None]
  - MUSCULOSKELETAL STIFFNESS [None]
  - NO THERAPEUTIC RESPONSE [None]
  - PAIN [None]
  - PERIPHERAL COLDNESS [None]
  - SENSORY DISTURBANCE [None]
  - THERAPEUTIC RESPONSE DECREASED [None]
  - UNEVALUABLE EVENT [None]
  - WEIGHT DECREASED [None]
